FAERS Safety Report 11577872 (Version 1)
Quarter: 2015Q3

REPORT INFORMATION
  Report Type: Spontaneous
  Country: US (occurrence: US)
  Receive Date: 20150930
  Receipt Date: 20150930
  Transmission Date: 20151125
  Serious: Yes (Other)
  Sender: FDA-Public Use
  Company Number: US-PFIZER INC-2015322125

PATIENT
  Age: 2 Year
  Sex: Male

DRUGS (1)
  1. BENEFIX [Suspect]
     Active Substance: COAGULATION FACTOR IX RECOMBINANT HUMAN\ISOPROPYL ALCOHOL
     Indication: HAEMOPHILIA
     Dosage: 880 IU, WEEKLY EVERY FRIDAY
     Dates: start: 20130326

REACTIONS (3)
  - Contusion [Unknown]
  - Insomnia [Unknown]
  - Psychomotor hyperactivity [Unknown]
